FAERS Safety Report 13908289 (Version 1)
Quarter: 2017Q3

REPORT INFORMATION
  Report Type: Spontaneous
  Country: US (occurrence: US)
  Receive Date: 20170826
  Receipt Date: 20170826
  Transmission Date: 20171127
  Serious: No
  Sender: FDA-Public Use
  Company Number: US-GE HEALTHCARE LIFE SCIENCES-2017CSU002342

PATIENT
  Age: 42 Year
  Sex: Male

DRUGS (1)
  1. VISIPAQUE [Suspect]
     Active Substance: IODIXANOL
     Indication: NEOPLASM MALIGNANT
     Dosage: 150 ML, SINGLE
     Route: 042
     Dates: start: 20170731, end: 20170731

REACTIONS (1)
  - Rash [Unknown]

NARRATIVE: CASE EVENT DATE: 20170731
